FAERS Safety Report 4603795-7 (Version None)
Quarter: 2005Q1

REPORT INFORMATION
  Report Type: 
  Country: None (occurrence: None)
  Receive Date: 20050308
  Receipt Date: 20050308
  Transmission Date: 20050727
  Serious: Yes (Other)
  Sender: FDA-Public Use
  Company Number: None

PATIENT
  Age: 53 Year
  Sex: Male
  Weight: 121.564 kg

DRUGS (1)
  1. AVANDAMET  4-1000MG GSK [Suspect]
     Indication: DIABETES MELLITUS
     Dosage: 2 DAY
     Dates: start: 20050304, end: 20050306

REACTIONS (2)
  - BLOOD GLUCOSE DECREASED [None]
  - PHARMACEUTICAL PRODUCT COMPLAINT [None]
